FAERS Safety Report 4771693-4 (Version None)
Quarter: 2005Q3

REPORT INFORMATION
  Report Type: 
  Country: None (occurrence: None)
  Receive Date: 20050914
  Receipt Date: 20050902
  Transmission Date: 20060218
  Serious: Yes (Hospitalization)
  Sender: FDA-Public Use
  Company Number: CHNY2005DE01736

PATIENT
  Sex: Male

DRUGS (1)
  1. NICOTINE [Suspect]
     Indication: SUICIDE ATTEMPT
     Dosage: 40 PATCHES, ONCE, TRANSDERMAL
     Route: 062
     Dates: start: 20050902, end: 20050902

REACTIONS (6)
  - CARDIOVASCULAR DISORDER [None]
  - HEART RATE DECREASED [None]
  - INTENTIONAL MISUSE [None]
  - SOMNOLENCE [None]
  - SUICIDE ATTEMPT [None]
  - VOMITING [None]
